FAERS Safety Report 4945762-X (Version None)
Quarter: 2006Q1

REPORT INFORMATION
  Report Type: 
  Country: None (occurrence: None)
  Receive Date: 20060316
  Receipt Date: 20060306
  Transmission Date: 20060701
  Serious: Yes (Life-Threatening, Hospitalization, Disabling, Other)
  Sender: FDA-Public Use
  Company Number: GB-BRISTOL-MYERS SQUIBB COMPANY-13313366

PATIENT
  Age: 85 Year
  Sex: Female
  Weight: 73 kg

DRUGS (8)
  1. IFOSFAMIDE [Suspect]
     Indication: LYMPHOMA
     Route: 042
     Dates: start: 20060123, end: 20060125
  2. MESNA [Suspect]
     Indication: LYMPHOMA
     Route: 042
     Dates: start: 20060123, end: 20060125
  3. MITOXANTRONE [Suspect]
     Indication: LYMPHOMA
     Route: 042
     Dates: start: 20060101
  4. OMEPRAZOLE [Concomitant]
     Indication: PROPHYLAXIS AGAINST GASTROINTESTINAL ULCER
     Route: 048
  5. ALLOPURINOL [Concomitant]
     Route: 048
  6. ACYCLOVIR [Concomitant]
     Indication: PROPHYLAXIS
     Route: 048
  7. CORTISONE ACETATE TAB [Concomitant]
     Route: 048
  8. METHYLDOPA [Concomitant]
     Indication: HYPERTENSION
     Route: 048

REACTIONS (3)
  - CEREBROVASCULAR ACCIDENT [None]
  - NEUROTOXICITY [None]
  - UNRESPONSIVE TO VERBAL STIMULI [None]
